FAERS Safety Report 24291553 (Version 1)
Quarter: 2024Q3

REPORT INFORMATION
  Report Type: Spontaneous
  Country: US (occurrence: None)
  Receive Date: 20240906
  Receipt Date: 20240906
  Transmission Date: 20241017
  Serious: No
  Sender: DOMPE FARMACEUTICI
  Company Number: US-FARMAPROD-202309-2783

PATIENT
  Age: 87 Year
  Sex: Female

DRUGS (10)
  1. OXERVATE [Suspect]
     Active Substance: CENEGERMIN-BKBJ
     Indication: Neurotrophic keratopathy
     Route: 047
     Dates: start: 20230906
  2. OXERVATE [Suspect]
     Active Substance: CENEGERMIN-BKBJ
  3. FEMARA [Concomitant]
     Active Substance: LETROZOLE
  4. LUMIFY [Concomitant]
     Active Substance: BRIMONIDINE TARTRATE
  5. NORVASC [Concomitant]
     Active Substance: AMLODIPINE BESYLATE
  6. LISINOPRIL [Concomitant]
     Active Substance: LISINOPRIL
  7. XIIDRA [Concomitant]
     Active Substance: LIFITEGRAST
  8. LOTEMAX [Concomitant]
     Active Substance: LOTEPREDNOL ETABONATE
  9. REFRESH CELLUVISC [Concomitant]
     Active Substance: CARBOXYMETHYLCELLULOSE SODIUM
  10. VASELIN [Concomitant]

REACTIONS (5)
  - Eye pain [Not Recovered/Not Resolved]
  - Product use complaint [Not Recovered/Not Resolved]
  - Ocular hyperaemia [Unknown]
  - Asthenopia [Unknown]
  - Eye inflammation [Unknown]

NARRATIVE: CASE EVENT DATE: 20230913
